FAERS Safety Report 7458437-2 (Version None)
Quarter: 2011Q2

REPORT INFORMATION
  Report Type: 
  Country: None (occurrence: None)
  Receive Date: 20110504
  Receipt Date: 20110427
  Transmission Date: 20111010
  Serious: Yes (Life-Threatening, Hospitalization)
  Sender: FDA-Public Use
  Company Number: B0693970A

PATIENT
  Sex: Male
  Weight: 78 kg

DRUGS (27)
  1. DUTASTERIDE [Suspect]
     Indication: BENIGN PROSTATIC HYPERPLASIA
     Dosage: 500UG PER DAY
     Route: 048
     Dates: start: 20060727
  2. TINZAPARIN [Concomitant]
     Route: 058
     Dates: start: 20110106
  3. DIPROBASE CREAM [Concomitant]
     Indication: DRY SKIN
     Route: 061
     Dates: start: 20110115
  4. NYSTATIN [Concomitant]
     Indication: FUNGAL INFECTION
     Route: 061
     Dates: start: 20110115
  5. BISOPROLOL FUMARATE [Concomitant]
     Indication: HYPERTENSION
     Dosage: 2.5MG PER DAY
     Route: 048
     Dates: start: 20070830
  6. ACETAMINOPHEN AND CODEINE PHOSPHATE [Concomitant]
     Indication: PAIN
     Route: 048
     Dates: start: 20100810
  7. NASEPTIN [Concomitant]
     Indication: STAPHYLOCOCCAL INFECTION
     Route: 061
     Dates: start: 20110111, end: 20110111
  8. RANITIDINE [Concomitant]
     Indication: PROPHYLAXIS
     Dosage: 150MG PER DAY
     Route: 048
     Dates: start: 19980928
  9. TAMSULOSIN HCL [Concomitant]
     Indication: URINARY RETENTION
     Dosage: 400MG PER DAY
     Route: 048
     Dates: start: 20040608
  10. COLPERMIN [Concomitant]
     Indication: ABDOMINAL DISTENSION
     Route: 048
     Dates: start: 20100824
  11. CYCLIZINE [Concomitant]
     Indication: NAUSEA
     Route: 048
     Dates: start: 20100825
  12. MELPHALAN [Suspect]
     Indication: MULTIPLE MYELOMA
     Dates: start: 20100812
  13. FUROSEMIDE [Concomitant]
     Dosage: 10MG PER DAY
     Route: 042
     Dates: start: 20110105, end: 20110105
  14. ATORVASTATIN [Concomitant]
     Indication: BLOOD CHOLESTEROL INCREASED
     Dosage: 20MG PER DAY
     Route: 048
     Dates: start: 20070601
  15. ACICLOVIR [Concomitant]
     Indication: INFECTION PROPHYLAXIS
     Dosage: 800MG TWICE PER DAY
     Route: 048
     Dates: start: 20100812, end: 20110104
  16. LACTULOSE [Concomitant]
     Indication: CONSTIPATION PROPHYLAXIS
     Route: 048
     Dates: start: 20100815
  17. NEPRO [Concomitant]
     Route: 048
     Dates: start: 20110106
  18. THALIDOMIDE [Suspect]
     Indication: MULTIPLE MYELOMA
     Dosage: 200MG PER DAY
     Route: 048
     Dates: start: 20100812
  19. PREDNISONE [Suspect]
     Indication: MULTIPLE MYELOMA
     Dosage: 150MG PER DAY
     Dates: start: 20100812
  20. MOVIPREP [Suspect]
     Indication: CONSTIPATION PROPHYLAXIS
     Route: 048
     Dates: start: 20100924
  21. ASPIRIN [Suspect]
     Indication: PROPHYLAXIS
     Dosage: 75MG PER DAY
     Route: 048
     Dates: start: 20100923, end: 20110103
  22. BUMETANIDE [Suspect]
     Indication: FLUID RETENTION
     Dosage: 2MG PER DAY
     Route: 048
     Dates: start: 20101104
  23. COTRIM [Concomitant]
     Indication: INFECTION PROPHYLAXIS
     Route: 048
     Dates: start: 20100820, end: 20110102
  24. AMPICILLIN SODIUM/SULBACTAM SODIUM [Concomitant]
     Indication: URINARY TRACT INFECTION
     Route: 042
     Dates: start: 20110102, end: 20110102
  25. FOLIC ACID [Concomitant]
     Dosage: 5MG PER DAY
     Route: 048
     Dates: start: 20110113
  26. CALCICHEW D3 [Suspect]
     Indication: CALCIUM DEFICIENCY
     Dosage: 2TAB TWICE PER DAY
     Route: 048
     Dates: start: 20100831
  27. PERINDOPRIL [Concomitant]
     Indication: PROPHYLAXIS
     Dosage: 2MG PER DAY
     Route: 048
     Dates: start: 20100531

REACTIONS (6)
  - NEUTROPENIC SEPSIS [None]
  - DYSPNOEA [None]
  - PANCYTOPENIA [None]
  - ENDOCARDITIS [None]
  - RENAL FAILURE ACUTE [None]
  - FATIGUE [None]
